FAERS Safety Report 19984630 (Version 2)
Quarter: 2021Q4

REPORT INFORMATION
  Report Type: Report from Study
  Country: ES (occurrence: ES)
  Receive Date: 20211022
  Receipt Date: 20211028
  Transmission Date: 20220303
  Serious: Yes (Death, Life-Threatening, Other)
  Sender: FDA-Public Use
  Company Number: ES-ROCHE-2897123

PATIENT
  Age: 63 Year
  Sex: Male
  Weight: 74.6 kg

DRUGS (21)
  1. GLOFITAMAB [Suspect]
     Active Substance: GLOFITAMAB
     Indication: B-cell lymphoma refractory
     Dosage: START DATE OF MOST RECENT DOSE OF RO7082859, 2.5 MG PRIOR TO AE ON 20/AUG/2021 9:58 AM AND AT 07:10
     Route: 042
     Dates: start: 20210820
  2. OBINUTUZUMAB [Suspect]
     Active Substance: OBINUTUZUMAB
     Indication: B-cell lymphoma refractory
     Dosage: START DATE OF MOST RECENT DOSE OF OBINUTUZUMAB, 1000 MG PRIOR TO SAE 13/AUG/2021
     Route: 042
     Dates: start: 20210813
  3. TOCILIZUMAB [Suspect]
     Active Substance: TOCILIZUMAB
     Indication: Cytokine release syndrome
     Route: 042
     Dates: start: 20210821
  4. MORPHINE [Concomitant]
     Active Substance: MORPHINE
     Route: 042
     Dates: start: 20210818
  5. OXYGEN [Concomitant]
     Active Substance: OXYGEN
     Indication: Hypoxia
  6. ACETAMINOPHEN [Concomitant]
     Active Substance: ACETAMINOPHEN
     Dates: start: 20210820, end: 20210820
  7. METHYLPREDNISOLONE [Concomitant]
     Active Substance: METHYLPREDNISOLONE
     Dates: start: 20210813, end: 20210813
  8. METHYLPREDNISOLONE [Concomitant]
     Active Substance: METHYLPREDNISOLONE
     Dates: start: 20210820, end: 20210820
  9. DEXCHLORPHENIRAMINE [Concomitant]
     Active Substance: DEXCHLORPHENIRAMINE
     Dates: start: 20210813, end: 20210813
  10. DEXCHLORPHENIRAMINE [Concomitant]
     Active Substance: DEXCHLORPHENIRAMINE
     Dates: start: 20210820, end: 20210820
  11. OMEPRAZOLE [Concomitant]
     Active Substance: OMEPRAZOLE
  12. ALLOPURINOL [Concomitant]
     Active Substance: ALLOPURINOL
  13. FENTANYL [Concomitant]
     Active Substance: FENTANYL
     Indication: Pain prophylaxis
  14. FENTANYL CITRATE [Concomitant]
     Active Substance: FENTANYL CITRATE
     Indication: Pain prophylaxis
  15. METAMIZOLE [Concomitant]
     Active Substance: METAMIZOLE
  16. ENOXAPARIN SODIUM [Concomitant]
     Active Substance: ENOXAPARIN SODIUM
  17. LORAZEPAM [Concomitant]
     Active Substance: LORAZEPAM
     Indication: Prophylaxis
  18. LORAZEPAM [Concomitant]
     Active Substance: LORAZEPAM
     Indication: Prophylaxis
  19. TRAZODONE [Concomitant]
     Active Substance: TRAZODONE HYDROCHLORIDE
  20. ACYCLOVIR [Concomitant]
     Active Substance: ACYCLOVIR
     Indication: Pain prophylaxis
  21. SULFAMETHOXAZOLE\TRIMETHOPRIM [Concomitant]
     Active Substance: SULFAMETHOXAZOLE\TRIMETHOPRIM
     Indication: Antibiotic prophylaxis

REACTIONS (2)
  - Tumour lysis syndrome [Not Recovered/Not Resolved]
  - Cytokine release syndrome [Recovered/Resolved]

NARRATIVE: CASE EVENT DATE: 20210821
